FAERS Safety Report 5907054-1 (Version None)
Quarter: 2008Q4

REPORT INFORMATION
  Report Type: 
  Country: None (occurrence: None)
  Receive Date: 20081003
  Receipt Date: 20080925
  Transmission Date: 20090506
  Serious: Yes (Other)
  Sender: FDA-Public Use
  Company Number: US-TYCO HEALTHCARE/MALLINCKRODT-T200801576

PATIENT

DRUGS (2)
  1. OPTIMARK [Suspect]
     Indication: SCAN
     Dates: start: 20051001
  2. OMNISCAN [Suspect]
     Indication: ANGIOGRAM
     Dates: start: 20021201

REACTIONS (1)
  - NEPHROGENIC SYSTEMIC FIBROSIS [None]
